FAERS Safety Report 17131902 (Version 1)
Quarter: 2019Q4

REPORT INFORMATION
  Report Type: Spontaneous
  Country: US (occurrence: US)
  Receive Date: 20191209
  Receipt Date: 20191209
  Transmission Date: 20200122
  Serious: Yes (Hospitalization)
  Sender: FDA-Public Use
  Company Number: US-UCBSA-2016042284

PATIENT
  Sex: Male

DRUGS (1)
  1. CIMZIA [Suspect]
     Active Substance: CERTOLIZUMAB PEGOL
     Indication: CROHN^S DISEASE
     Dosage: STRENGTH 200MG/ML, 400 MG, EV 4 WEEKS, NDC # 50474-071079
     Route: 058
     Dates: start: 20150205

REACTIONS (1)
  - Crohn^s disease [Unknown]
